FAERS Safety Report 4437538-7 (Version None)
Quarter: 2004Q3

REPORT INFORMATION
  Report Type: 
  Country: None (occurrence: None)
  Receive Date: 20040830
  Receipt Date: 20040830
  Transmission Date: 20050211
  Serious: Yes (Hospitalization)
  Sender: FDA-Public Use
  Company Number: None

PATIENT
  Age: 73 Year
  Sex: Male
  Weight: 74.8435 kg

DRUGS (5)
  1. TAXOTERE [Suspect]
     Indication: OESOPHAGEAL CARCINOMA
     Dosage: 75 MG IV Q WK
     Route: 042
     Dates: start: 20040812
  2. TAXOTERE [Suspect]
     Indication: OESOPHAGEAL CARCINOMA
     Dosage: 75 MG IV Q WK
     Route: 042
     Dates: start: 20040819
  3. CARBOPLATIN [Suspect]
     Indication: OESOPHAGEAL CARCINOMA
     Dosage: 250 MG IV
     Route: 042
     Dates: start: 20040812
  4. CARBOPLATIN [Suspect]
     Indication: OESOPHAGEAL CARCINOMA
     Dosage: 250 MG IV
     Route: 042
     Dates: start: 20040819
  5. CAPECITABINE [Suspect]
     Indication: OESOPHAGEAL CARCINOMA
     Dosage: 3500 MG Q DAY PO
     Route: 048
     Dates: start: 20040812, end: 20040816

REACTIONS (3)
  - GASTROOESOPHAGEAL REFLUX DISEASE [None]
  - POST PROCEDURAL NAUSEA [None]
  - POST PROCEDURAL VOMITING [None]
